FAERS Safety Report 4356478-5 (Version None)
Quarter: 2004Q2

REPORT INFORMATION
  Report Type: 
  Country: None (occurrence: None)
  Receive Date: 20040506
  Receipt Date: 20040424
  Transmission Date: 20050107
  Serious: Yes (Hospitalization)
  Sender: FDA-Public Use
  Company Number: 2004UW06966

PATIENT
  Age: 72 Year
  Sex: Male

DRUGS (4)
  1. CASODEX [Suspect]
     Indication: PROSTATE CANCER METASTATIC
     Dosage: 50 MG QD PO
     Route: 048
     Dates: start: 20040201, end: 20040401
  2. LUPRON [Concomitant]
  3. ASPIRIN [Concomitant]
  4. SIMVASTATIN [Concomitant]

REACTIONS (3)
  - ATRIAL FLUTTER [None]
  - DYSPNOEA [None]
  - HEPATITIS ACUTE [None]
